FAERS Safety Report 4534772-2 (Version None)
Quarter: 2004Q4

REPORT INFORMATION
  Report Type: 
  Country: None (occurrence: None)
  Receive Date: 20041222
  Receipt Date: 20040220
  Transmission Date: 20050328
  Serious: No
  Sender: FDA-Public Use
  Company Number: US-BRISTOL-MYERS SQUIBB COMPANY-12513321

PATIENT
  Sex: Female

DRUGS (2)
  1. PRAVACHOL [Suspect]
     Indication: BLOOD CHOLESTEROL INCREASED
     Dosage: DOSE DECREASED TO 20MG DAILY ON 22-JAN-2004.
     Route: 048
  2. ATIVAN [Concomitant]

REACTIONS (2)
  - NERVOUSNESS [None]
  - SLEEP DISORDER [None]
